FAERS Safety Report 7326166-1 (Version None)
Quarter: 2011Q1

REPORT INFORMATION
  Report Type: 
  Country: None (occurrence: None)
  Receive Date: 20110302
  Receipt Date: 20110221
  Transmission Date: 20110831
  Serious: Yes (Hospitalization)
  Sender: FDA-Public Use
  Company Number: DE-ROCHE-762642

PATIENT
  Sex: Female
  Weight: 67 kg

DRUGS (3)
  1. CAPECITABINE [Suspect]
     Dosage: 2 CYCLES
     Route: 048
     Dates: start: 20101208, end: 20110111
  2. VOMEX A [Concomitant]
     Indication: NAUSEA
     Dosage: IF REQUIRED
     Route: 048
  3. LOPERAMIDE [Concomitant]
     Indication: DIARRHOEA
     Dosage: IF REQUIRED UP TO 8 DF PER DAY
     Route: 048

REACTIONS (3)
  - GASTROINTESTINAL TOXICITY [None]
  - RECTAL TENESMUS [None]
  - DIARRHOEA [None]
